FAERS Safety Report 17342342 (Version 1)
Quarter: 2020Q1

REPORT INFORMATION
  Report Type: Spontaneous
  Country: US (occurrence: US)
  Receive Date: 20200129
  Receipt Date: 20200129
  Transmission Date: 20200409
  Serious: No
  Sender: FDA-Public Use
  Company Number: US-ALLERGAN-1925640US

PATIENT

DRUGS (2)
  1. BOTOX COSMETIC [Suspect]
     Active Substance: ONABOTULINUMTOXINA
     Indication: PRODUCT USED FOR UNKNOWN INDICATION
     Dosage: UNK UNK, SINGLE
     Route: 065
  2. JUVEDERM [Concomitant]
     Active Substance: HYALURONIC ACID
     Dosage: UNK UNK, SINGLE
     Route: 065

REACTIONS (4)
  - Headache [Unknown]
  - Anxiety [Unknown]
  - Affect lability [Unknown]
  - Depression [Unknown]
